FAERS Safety Report 20034999 (Version 1)
Quarter: 2021Q4

REPORT INFORMATION
  Report Type: Spontaneous
  Country: GB (occurrence: GB)
  Receive Date: 20211104
  Receipt Date: 20211104
  Transmission Date: 20220303
  Serious: Yes (Disabling, Other)
  Sender: FDA-Public Use
  Company Number: None

PATIENT
  Age: 17 Year
  Sex: Female

DRUGS (1)
  1. MEDROXYPROGESTERONE\MEDROXYPROGESTERONE ACETATE [Suspect]
     Active Substance: MEDROXYPROGESTERONE\MEDROXYPROGESTERONE ACETATE
     Indication: Contraception
     Dosage: 1 DF, EVERY 3 MONTHS (1 DOSE WHICH LASTED 3 MONTHS)
     Route: 051
     Dates: start: 202007

REACTIONS (3)
  - Weight increased [Recovered/Resolved with Sequelae]
  - Loss of libido [Not Recovered/Not Resolved]
  - Breast discharge [Recovered/Resolved]

NARRATIVE: CASE EVENT DATE: 20200701
